FAERS Safety Report 21692077 (Version 1)
Quarter: 2022Q4

REPORT INFORMATION
  Report Type: Report from Study
  Country: US (occurrence: US)
  Receive Date: 20221207
  Receipt Date: 20221207
  Transmission Date: 20230112
  Serious: Yes (Hospitalization, Other)
  Sender: FDA-Public Use
  Company Number: US-ABBVIE-4225041

PATIENT
  Sex: Male

DRUGS (1)
  1. IMBRUVICA [Suspect]
     Active Substance: IBRUTINIB
     Indication: Dubin-Johnson syndrome
     Route: 048
     Dates: end: 20221128

REACTIONS (5)
  - Recurrent cancer [Unknown]
  - Full blood count decreased [Unknown]
  - Asthenia [Unknown]
  - Fall [Unknown]
  - Dyspnoea [Unknown]
